FAERS Safety Report 5700571-9 (Version None)
Quarter: 2008Q2

REPORT INFORMATION
  Report Type: 
  Country: None (occurrence: None)
  Receive Date: 20080410
  Receipt Date: 20080404
  Transmission Date: 20081010
  Serious: Yes (Other)
  Sender: FDA-Public Use
  Company Number: CH-JNJFOC-20080306439

PATIENT
  Sex: Female
  Weight: 50 kg

DRUGS (3)
  1. RISPERDAL [Suspect]
     Indication: AGGRESSION
     Route: 048
  2. DEPAKENE [Concomitant]
     Indication: EPILEPSY
     Route: 048
  3. URBANYL [Concomitant]
     Indication: EPILEPSY
     Route: 048

REACTIONS (3)
  - INFLUENZA [None]
  - PRURITUS [None]
  - RASH [None]
